FAERS Safety Report 7329303-8 (Version None)
Quarter: 2011Q1

REPORT INFORMATION
  Report Type: 
  Country: None (occurrence: None)
  Receive Date: 20110228
  Receipt Date: 20110228
  Transmission Date: 20110831
  Serious: Yes (Life-Threatening, Hospitalization)
  Sender: FDA-Public Use
  Company Number: None

PATIENT
  Age: 41 Year
  Sex: Female
  Weight: 110.6777 kg

DRUGS (2)
  1. ZOVIRAX [Suspect]
     Dosage: 400 MG 2 TIMES A DAY PO
     Route: 048
     Dates: start: 20051020, end: 20110101
  2. ACYCLOVIR [Concomitant]

REACTIONS (1)
  - HEPATITIS ACUTE [None]
